FAERS Safety Report 13822826 (Version 8)
Quarter: 2020Q2

REPORT INFORMATION
  Report Type: Report from Study
  Country: AU (occurrence: AU)
  Receive Date: 20170801
  Receipt Date: 20200603
  Transmission Date: 20200713
  Serious: Yes (Death, Life-Threatening, Hospitalization, Disabling, Other)
  Sender: FDA-Public Use
  Company Number: AU-CELGENEUS-AUS-20170606174

PATIENT
  Age: 81 Year
  Sex: Male
  Weight: 51 kg

DRUGS (38)
  1. SODIUM PHOSPHATE [Concomitant]
     Active Substance: SODIUM PHOSPHATE
     Indication: PRODUCT USED FOR UNKNOWN INDICATION
     Dosage: 18 GRAM
     Route: 048
     Dates: start: 20170610, end: 20170610
  2. ALLOPURINOL. [Concomitant]
     Active Substance: ALLOPURINOL
     Indication: TUMOUR LYSIS SYNDROME
     Route: 065
     Dates: start: 20170312, end: 20170316
  3. VENETOCLAX. [Concomitant]
     Active Substance: VENETOCLAX
     Dosage: 800 MILLIGRAM
     Route: 048
     Dates: start: 20170316, end: 20170321
  4. SPIRIVA [Concomitant]
     Active Substance: TIOTROPIUM BROMIDE MONOHYDRATE
     Indication: RESPIRATORY DISORDER
     Dosage: 18 MICROGRAM
     Route: 055
     Dates: start: 20170209
  5. FUROSEMIDE. [Concomitant]
     Active Substance: FUROSEMIDE
     Indication: DISCHARGE
  6. GRAPSEED OIL [Concomitant]
     Indication: DENTAL DISORDER PROPHYLAXIS
     Route: 061
     Dates: start: 20170628, end: 20170705
  7. ALLOPURINOL. [Concomitant]
     Active Substance: ALLOPURINOL
     Indication: PROPHYLAXIS
  8. ALBUMEX 20 [Concomitant]
     Active Substance: ALBUMIN HUMAN
     Indication: FULL BLOOD COUNT DECREASED
     Route: 041
     Dates: start: 20170607, end: 20170705
  9. VIDAZA [Suspect]
     Active Substance: AZACITIDINE
     Indication: MYELODYSPLASTIC SYNDROME
     Dosage: 75 MILLIGRAM/SQ. METER
     Route: 058
     Dates: start: 20170313, end: 20170516
  10. THIAMINE. [Concomitant]
     Active Substance: THIAMINE
     Indication: NUTRITIONAL SUPPLEMENTATION
     Dosage: 300 MILLIGRAM
     Route: 041
     Dates: start: 20170405, end: 20170704
  11. VANCOMYCIN [Concomitant]
     Active Substance: VANCOMYCIN
     Indication: SEPSIS
     Dosage: 2 GRAM
     Route: 058
     Dates: start: 20170406, end: 20170701
  12. PACKED RED BLOOD CELLS [Concomitant]
     Active Substance: HUMAN RED BLOOD CELL
     Indication: PRODUCT USED FOR UNKNOWN INDICATION
     Route: 041
     Dates: start: 20170313, end: 20170428
  13. COMPOUND SODIUM LACTATE [Concomitant]
     Active Substance: CALCIUM CHLORIDE\POTASSIUM CHLORIDE\SODIUM CHLORIDE\SODIUM LACTATE
     Indication: PROPHYLAXIS
     Route: 065
     Dates: start: 20170314, end: 20170315
  14. VENETOCLAX. [Concomitant]
     Active Substance: VENETOCLAX
     Indication: MYELODYSPLASTIC SYNDROME
     Dosage: 100 MILLIGRAM
     Route: 048
     Dates: start: 20170313, end: 20170313
  15. VENETOCLAX. [Concomitant]
     Active Substance: VENETOCLAX
     Dosage: 200 MILLIGRAM
     Route: 048
     Dates: start: 20170314, end: 20170314
  16. VALTREX [Concomitant]
     Active Substance: VALACYCLOVIR HYDROCHLORIDE
     Indication: ANTIVIRAL PROPHYLAXIS
     Dosage: 1000 MILLIGRAM
     Route: 048
     Dates: start: 20170317, end: 20170706
  17. PETER [Concomitant]
     Indication: ULCER
     Dosage: 40 MILLILITER
     Route: 048
     Dates: start: 20170317, end: 20170706
  18. POTASSIUM CHLORIDE. [Concomitant]
     Active Substance: POTASSIUM CHLORIDE
     Indication: PROPHYLAXIS
     Dosage: 4 MILLIMOLE
     Route: 041
     Dates: start: 20170406, end: 20170606
  19. AMPHOTERICIN B. [Concomitant]
     Active Substance: AMPHOTERICIN B
     Indication: ORAL CANDIDIASIS
     Dosage: 18 GRAM
     Route: 048
     Dates: start: 20170607, end: 20170704
  20. SODIUM CHLORIDE. [Concomitant]
     Active Substance: SODIUM CHLORIDE
     Indication: PROPHYLAXIS
     Route: 065
     Dates: start: 20170312, end: 20170317
  21. MOVICOL [Concomitant]
     Active Substance: POLYETHYLENE GLYCOL 3350\POTASSIUM CHLORIDE\SODIUM BICARBONATE\SODIUM CHLORIDE
     Indication: CONSTIPATION PROPHYLAXIS
     Route: 048
     Dates: start: 20170317, end: 20170706
  22. PARACETAMOL [Concomitant]
     Active Substance: ACETAMINOPHEN
     Indication: HEADACHE
     Dosage: 4 GRAM
     Route: 048
     Dates: start: 20170402, end: 20170605
  23. AMBISOME [Concomitant]
     Active Substance: AMPHOTERICIN B
     Indication: ANTIFUNGAL PROPHYLAXIS
     Dosage: 25 MILLIGRAM
     Route: 041
     Dates: start: 20170404, end: 20170701
  24. NILSTAT [Concomitant]
     Active Substance: NYSTATIN
     Indication: ANTIFUNGAL PROPHYLAXIS
     Dosage: 4 MILLILITER
     Route: 041
     Dates: start: 20170405, end: 20170706
  25. VITAMIN K [Concomitant]
     Active Substance: PHYTONADIONE
     Indication: PROPHYLAXIS
     Dosage: 18 GRAM
     Route: 041
     Dates: start: 20170608, end: 20170608
  26. VENETOCLAX. [Concomitant]
     Active Substance: VENETOCLAX
     Dosage: 400 MILLIGRAM
     Route: 048
     Dates: start: 20170315, end: 20170315
  27. COLOXYL AND SENNA [Concomitant]
     Indication: CONSTIPATION PROPHYLAXIS
     Dosage: 4 TABLET
     Route: 048
     Dates: start: 20170315, end: 20170617
  28. MEROPENEM. [Concomitant]
     Active Substance: MEROPENEM
     Indication: PYREXIA
     Dosage: 3 GRAM
     Route: 041
     Dates: start: 20170404, end: 20170706
  29. AZITHROMYCIN ANHYDROUS. [Concomitant]
     Active Substance: AZITHROMYCIN ANHYDROUS
     Indication: SEPSIS
     Dosage: 500 MILLIGRAM
     Route: 048
     Dates: start: 20170406
  30. PETHIDINE [Concomitant]
     Active Substance: MEPERIDINE
     Indication: CHILLS
     Dosage: 25 MILLIGRAM
     Route: 041
     Dates: start: 20170404, end: 20170701
  31. POSACONAZOLE [Concomitant]
     Active Substance: POSACONAZOLE
     Indication: ANTIFUNGAL PROPHYLAXIS
     Dosage: 600 MILLIGRAM
     Route: 048
     Dates: start: 20170410
  32. VITAMIN K [Concomitant]
     Active Substance: PHYTONADIONE
     Route: 041
     Dates: start: 20170608, end: 20170611
  33. ALBUMEX 20 [Concomitant]
     Active Substance: ALBUMIN HUMAN
     Indication: BLOOD ALBUMIN DECREASED
     Route: 041
     Dates: start: 20170412, end: 20170611
  34. HYDROCORTISONE. [Concomitant]
     Active Substance: HYDROCORTISONE
     Indication: DYSPNOEA
     Dosage: 200 MILLIGRAM
     Route: 065
     Dates: start: 20170415, end: 20170612
  35. ONDANSETRON [Concomitant]
     Active Substance: ONDANSETRON
     Indication: NAUSEA
     Route: 048
     Dates: start: 20170404, end: 20170607
  36. THIAMINE. [Concomitant]
     Active Substance: THIAMINE
     Dosage: 100 MILLIGRAM
     Route: 041
     Dates: start: 20170606, end: 20170704
  37. FUROSEMIDE. [Concomitant]
     Active Substance: FUROSEMIDE
     Indication: DEHYDRATION
     Route: 041
     Dates: start: 20170405, end: 20170704
  38. POSACONAZOLE [Concomitant]
     Active Substance: POSACONAZOLE
     Dosage: 600 MILLIGRAM
     Route: 048
     Dates: start: 20170609, end: 20170610

REACTIONS (5)
  - Pulmonary sepsis [Unknown]
  - Bronchopulmonary aspergillosis [Fatal]
  - Respiratory failure [Unknown]
  - Febrile neutropenia [Recovered/Resolved]
  - Acute kidney injury [Unknown]

NARRATIVE: CASE EVENT DATE: 20170606
